FAERS Safety Report 20655127 (Version 1)
Quarter: 2022Q1

REPORT INFORMATION
  Report Type: Spontaneous
  Country: GB (occurrence: GB)
  Receive Date: 20220330
  Receipt Date: 20220330
  Transmission Date: 20220423
  Serious: Yes (Other)
  Sender: FDA-Public Use
  Company Number: GB-NOVARTISPH-NVSC2022GB066311

PATIENT
  Age: 49 Year

DRUGS (16)
  1. EVEROLIMUS [Suspect]
     Active Substance: EVEROLIMUS
     Indication: Breast cancer
     Dosage: UNK
     Route: 065
  2. EVEROLIMUS [Suspect]
     Active Substance: EVEROLIMUS
     Indication: Metastases to bone
  3. EVEROLIMUS [Suspect]
     Active Substance: EVEROLIMUS
     Indication: Metastases to lung
  4. EVEROLIMUS [Suspect]
     Active Substance: EVEROLIMUS
     Indication: Metastases to pleura
  5. ANASTROZOLE [Suspect]
     Active Substance: ANASTROZOLE
     Indication: Breast cancer
     Dosage: UNK
     Route: 065
     Dates: start: 201812
  6. ANASTROZOLE [Suspect]
     Active Substance: ANASTROZOLE
     Indication: Metastases to bone
  7. ANASTROZOLE [Suspect]
     Active Substance: ANASTROZOLE
     Indication: Metastases to lung
  8. ANASTROZOLE [Suspect]
     Active Substance: ANASTROZOLE
     Indication: Metastases to pleura
  9. FULVESTRANT [Suspect]
     Active Substance: FULVESTRANT
     Indication: Breast cancer
     Dosage: UNK
     Route: 065
     Dates: start: 201910, end: 202105
  10. FULVESTRANT [Suspect]
     Active Substance: FULVESTRANT
     Indication: Metastases to bone
  11. FULVESTRANT [Suspect]
     Active Substance: FULVESTRANT
     Indication: Metastases to lung
  12. FULVESTRANT [Suspect]
     Active Substance: FULVESTRANT
     Indication: Metastases to pleura
  13. ABEMACICLIB [Suspect]
     Active Substance: ABEMACICLIB
     Indication: Breast cancer
     Dosage: UNK
     Route: 065
     Dates: start: 201910, end: 202105
  14. ABEMACICLIB [Suspect]
     Active Substance: ABEMACICLIB
     Indication: Metastases to bone
  15. ABEMACICLIB [Suspect]
     Active Substance: ABEMACICLIB
     Indication: Metastases to lung
  16. ABEMACICLIB [Suspect]
     Active Substance: ABEMACICLIB
     Indication: Metastases to pleura

REACTIONS (14)
  - Diabetes mellitus [Unknown]
  - Fatigue [Unknown]
  - Metastases to liver [Unknown]
  - Metastases to bone [Unknown]
  - Metastases to breast [Unknown]
  - Malignant neoplasm progression [Unknown]
  - Pain in extremity [Unknown]
  - Vaginal discharge [Unknown]
  - Dry skin [Unknown]
  - Cough [Unknown]
  - Oral pain [Unknown]
  - Glossodynia [Unknown]
  - Pelvic pain [Unknown]
  - Arthralgia [Unknown]

NARRATIVE: CASE EVENT DATE: 20210801
